FAERS Safety Report 25202750 (Version 1)
Quarter: 2025Q2

REPORT INFORMATION
  Report Type: Spontaneous
  Country: ES (occurrence: ES)
  Receive Date: 20250416
  Receipt Date: 20250416
  Transmission Date: 20250716
  Serious: Yes (Other)
  Sender: B BRAUN
  Company Number: ES-B.Braun Medical Inc.-2175001

PATIENT
  Age: 23 Year
  Sex: Female

DRUGS (2)
  1. BUPIVACAINE HYDROCHLORIDE [Suspect]
     Active Substance: BUPIVACAINE HYDROCHLORIDE
     Indication: Headache
     Dates: start: 20211004
  2. BOTULINUM TOXIN TYPE A [Interacting]
     Active Substance: BOTULINUM TOXIN TYPE A

REACTIONS (3)
  - Concomitant disease aggravated [Recovered/Resolved]
  - Drug interaction [Unknown]
  - Primary stabbing headache [Recovered/Resolved]
